FAERS Safety Report 19706698 (Version 1)
Quarter: 2021Q3

REPORT INFORMATION
  Report Type: Report from Study
  Country: US (occurrence: US)
  Receive Date: 20210817
  Receipt Date: 20210817
  Transmission Date: 20211014
  Serious: No
  Sender: FDA-Public Use
  Company Number: US-BIOVITRUM-2021US7543

PATIENT
  Sex: Female

DRUGS (6)
  1. LEVOTHYROXINE. [Concomitant]
     Active Substance: LEVOTHYROXINE
  2. POLY?VI?SOL [Concomitant]
     Active Substance: VITAMINS
  3. SIDENAFIL [Concomitant]
     Active Substance: SILDENAFIL
  4. TIMOLOL. [Concomitant]
     Active Substance: TIMOLOL
  5. FERROUS SULFATE. [Concomitant]
     Active Substance: FERROUS SULFATE
  6. SYNAGIS [Suspect]
     Active Substance: PALIVIZUMAB
     Indication: ANTIVIRAL PROPHYLAXIS
     Route: 030
     Dates: start: 20210722

REACTIONS (1)
  - Pyrexia [Recovered/Resolved]
